FAERS Safety Report 5825775-6 (Version None)
Quarter: 2008Q3

REPORT INFORMATION
  Report Type: 
  Country: None (occurrence: None)
  Receive Date: 20080728
  Receipt Date: 20080728
  Transmission Date: 20090109
  Serious: Yes (Life-Threatening, Hospitalization)
  Sender: FDA-Public Use
  Company Number: None

PATIENT
  Age: 48 Year
  Sex: Male
  Weight: 52.1637 kg

DRUGS (6)
  1. EPZICOM [Suspect]
     Indication: HIV INFECTION
     Dosage: 1 TABLET ONCE A DAY ORALLY
     Route: 048
     Dates: start: 20061130, end: 20080311
  2. SUSTIVA [Suspect]
     Indication: HIV INFECTION
     Dosage: 600 MILLIGRAMS ONCE A DAY ORALLY
     Route: 048
     Dates: start: 20061130
  3. TRUVADA [Suspect]
     Indication: HIV INFECTION
     Dosage: 1 TABLET ONCE A DAY ORALLY
     Route: 048
     Dates: start: 20080311
  4. NEURONTIN [Concomitant]
  5. LISINOPRIL [Concomitant]
  6. HYDROCHLOROTHIAZIDE [Concomitant]

REACTIONS (8)
  - AFFECTIVE DISORDER [None]
  - DEPRESSION [None]
  - HERPES ZOSTER [None]
  - HYPERTENSION [None]
  - INJURY [None]
  - LIVER INJURY [None]
  - NIGHTMARE [None]
  - SUICIDE ATTEMPT [None]
